FAERS Safety Report 6026200-5 (Version None)
Quarter: 2008Q4

REPORT INFORMATION
  Report Type: 
  Country: None (occurrence: None)
  Receive Date: 20081230
  Receipt Date: 20081215
  Transmission Date: 20090506
  Serious: Yes (Death)
  Sender: FDA-Public Use
  Company Number: 2008S1022318

PATIENT
  Age: 75 Year
  Sex: Female

DRUGS (3)
  1. DICLOFENAC (DICLOFENAC) [Suspect]
     Indication: PAIN
  2. ASPIRIN [Suspect]
     Indication: DRUG USE FOR UNKNOWN INDICATION
  3. CODEINE PHOSPHATE (CODEINE PHOSPHATE) [Suspect]
     Indication: PAIN

REACTIONS (2)
  - PERITONITIS [None]
  - SMALL INTESTINAL PERFORATION [None]
